FAERS Safety Report 7236405-3 (Version None)
Quarter: 2011Q1

REPORT INFORMATION
  Report Type: 
  Country: None (occurrence: None)
  Receive Date: 20110120
  Receipt Date: 20110117
  Transmission Date: 20110831
  Serious: Yes (Other)
  Sender: FDA-Public Use
  Company Number: FR-PFIZER INC-2010159144

PATIENT
  Age: 24 Year
  Sex: Male

DRUGS (4)
  1. STILNOX [Suspect]
     Dosage: UNK
     Dates: end: 20101101
  2. ALCOHOL [Suspect]
     Dosage: UNKNOWN; EXCESSIVE DOSE
  3. XANAX [Suspect]
     Dosage: 0.25 MG, 4X/DAY
     Dates: end: 20101101
  4. SEROPLEX [Suspect]
     Dosage: UNK
     Dates: end: 20101101

REACTIONS (2)
  - ALCOHOL ABUSE [None]
  - GAMMA-GLUTAMYLTRANSFERASE INCREASED [None]
